FAERS Safety Report 19906094 (Version 1)
Quarter: 2021Q3

REPORT INFORMATION
  Report Type: Spontaneous
  Country: US (occurrence: US)
  Receive Date: 20210930
  Receipt Date: 20210930
  Transmission Date: 20211014
  Serious: No
  Sender: FDA-Public Use
  Company Number: US-MYLANLABS-2021M1065432

PATIENT
  Age: 55 Year
  Sex: Female

DRUGS (2)
  1. ROPINIROLE TABLETS, USP [Suspect]
     Active Substance: ROPINIROLE
     Indication: RESTLESS LEGS SYNDROME
     Dosage: 3 MG, 1X/DAY AT NIGHT, UP TO 4 MG, 1X/DAY AT NIGHT
     Route: 048
     Dates: start: 202012
  2. ROPINIROLE TABLETS, USP [Suspect]
     Active Substance: ROPINIROLE
     Dosage: 3 MG, 1X/DAY AT NIGHT, UP TO 4 MG, 1X/DAY AT NIGHT
     Route: 048

REACTIONS (5)
  - Abdominal discomfort [Not Recovered/Not Resolved]
  - Dizziness [Not Recovered/Not Resolved]
  - Malaise [Not Recovered/Not Resolved]
  - Reaction to excipient [Unknown]
  - Product dispensing issue [Unknown]
